FAERS Safety Report 5702106-3 (Version None)
Quarter: 2008Q2

REPORT INFORMATION
  Report Type: 
  Country: None (occurrence: None)
  Receive Date: 20080411
  Receipt Date: 20071002
  Transmission Date: 20081010
  Serious: No
  Sender: FDA-Public Use
  Company Number: US-ABBOTT-07P-163-0419987-00

PATIENT
  Sex: Female
  Weight: 81.72 kg

DRUGS (2)
  1. DEPAKOTE [Suspect]
     Indication: CONVULSION
     Dosage: 250MG QAM AND 500 MG QHS
     Route: 048
     Dates: start: 19840101
  2. TOPIRAMATE [Concomitant]
     Indication: CONVULSION
     Route: 048

REACTIONS (2)
  - EYE PAIN [None]
  - NEURITIS [None]
